FAERS Safety Report 8855659 (Version 1)
Quarter: 2012Q4

REPORT INFORMATION
  Report Type: 
  Country: US (occurrence: US)
  Receive Date: 20121023
  Receipt Date: 20121023
  Transmission Date: 20130627
  Serious: No
  Sender: FDA-Public Use
  Company Number: US-AMGEN-USASP2012059069

PATIENT
  Sex: Female

DRUGS (3)
  1. ENBREL [Suspect]
     Indication: PRODUCT USED FOR UNKNOWN INDICATION
     Dosage: 50 mg, 2 times/wk
     Route: 058
  2. VITAMIN B12                        /00056201/ [Concomitant]
     Dosage: 1000 CR UNK, UNK
  3. SYNTHROID [Concomitant]
     Dosage: 100 mug, UNK

REACTIONS (2)
  - Joint swelling [Unknown]
  - Arthralgia [Unknown]
